FAERS Safety Report 14232049 (Version 5)
Quarter: 2018Q1

REPORT INFORMATION
  Report Type: Spontaneous
  Country: JP (occurrence: JP)
  Receive Date: 20171128
  Receipt Date: 20180118
  Transmission Date: 20180508
  Serious: Yes (Death, Hospitalization, Other)
  Sender: FDA-Public Use
  Company Number: JP-PFIZER INC-2017508861

PATIENT
  Age: 77 Year
  Sex: Female

DRUGS (15)
  1. CELECOX [Suspect]
     Active Substance: CELECOXIB
     Indication: PAIN
     Dosage: UNK
     Route: 048
     Dates: start: 20171102, end: 201711
  2. ASPIRIN /00002701/ [Concomitant]
     Active Substance: ASPIRIN
     Indication: PROPHYLAXIS
     Dosage: 200 MG, ONCE DAILY IN THE MORNING
     Route: 048
     Dates: start: 201103, end: 20171025
  3. CELESTAMINE [Concomitant]
     Active Substance: BETAMETHASONE\DEXCHLORPHENIRAMINE MALEATE
     Indication: COUGH
     Dosage: 1 DF, ONCE DAILY VDE
     Route: 048
     Dates: start: 20160511, end: 20171025
  4. MECOBALAMIN [Concomitant]
     Active Substance: METHYLCOBALAMIN
     Indication: HYPOAESTHESIA
     Dosage: 500 MG, THRICE DAILY AFTER EVERY MEAL
     Route: 048
     Dates: start: 201103, end: 20171025
  5. CELECOX [Suspect]
     Active Substance: CELECOXIB
     Indication: CEREBRAL INFARCTION
     Dosage: 100 MG, TWICE DAILY, AFTER BREAKFAST AND DINNER
     Route: 048
     Dates: start: 20160106, end: 20171025
  6. LASIX [Concomitant]
     Active Substance: FUROSEMIDE
     Indication: OEDEMA PERIPHERAL
     Dosage: 20 MG, ONCE DAILY IN THE MORNING
     Route: 048
     Dates: start: 20170329, end: 20171025
  7. MAGMITT [Concomitant]
     Active Substance: MAGNESIUM OXIDE
     Indication: CONSTIPATION
     Dosage: 330 MG, 2X/DAY
     Route: 048
     Dates: start: 201103, end: 20171025
  8. LOXOPROFEN NA [Concomitant]
     Active Substance: LOXOPROFEN SODIUM
     Indication: PAIN
     Dosage: 200 MG, 1X/DAY
     Route: 061
     Dates: start: 20160106, end: 20171025
  9. LOXOPROFEN NA [Concomitant]
     Active Substance: LOXOPROFEN SODIUM
     Indication: BACK PAIN
  10. TRAMCET [Suspect]
     Active Substance: ACETAMINOPHEN\TRAMADOL
     Dosage: UNK
     Route: 048
     Dates: start: 20171102, end: 201711
  11. MIYA-BM [Concomitant]
     Active Substance: CLOSTRIDIUM BUTYRICUM SPORES STRAIN M-55
     Indication: CONSTIPATION
     Dosage: 1 DF, ONCE DAILY VDE
     Route: 048
     Dates: start: 201103, end: 20171025
  12. ALLOPURINOL. [Concomitant]
     Active Substance: ALLOPURINOL
     Indication: HYPERURICAEMIA
     Dosage: 100 MG, ONCE DAILY IN THE MORNING
     Route: 048
     Dates: start: 20151111, end: 20171025
  13. CELECOX [Suspect]
     Active Substance: CELECOXIB
     Indication: BACK PAIN
  14. MUCOSTA [Concomitant]
     Active Substance: REBAMIPIDE
     Indication: GASTRITIS PROPHYLAXIS
     Dosage: 100 MG, TWICE DAILY IN THE MORNING AND EVENING
     Route: 048
     Dates: start: 20160106, end: 20171025
  15. TRAZENTA [Concomitant]
     Active Substance: LINAGLIPTIN
     Indication: TYPE 2 DIABETES MELLITUS
     Dosage: 5 MG, ONCE DAILY IN THE MORNING
     Route: 048
     Dates: start: 20170614, end: 20171025

REACTIONS (9)
  - Cardiomegaly [Unknown]
  - Condition aggravated [Fatal]
  - Traumatic haematoma [Unknown]
  - Swelling [Unknown]
  - Malaise [Unknown]
  - Skin ulcer [Unknown]
  - Type 2 diabetes mellitus [Unknown]
  - Acute kidney injury [Fatal]
  - Renal impairment [Recovering/Resolving]

NARRATIVE: CASE EVENT DATE: 201604
